FAERS Safety Report 23712403 (Version 1)
Quarter: 2024Q2

REPORT INFORMATION
  Report Type: Spontaneous
  Country: JP (occurrence: JP)
  Receive Date: 20240405
  Receipt Date: 20240405
  Transmission Date: 20240716
  Serious: Yes (Hospitalization)
  Sender: FDA-Public Use
  Company Number: JP-BRISTOL-MYERS SQUIBB COMPANY-2023-141049

PATIENT
  Age: 72 Year
  Sex: Male
  Weight: 51.9 kg

DRUGS (16)
  1. REVLIMID [Suspect]
     Active Substance: LENALIDOMIDE
     Indication: Follicular lymphoma
     Dates: start: 20230310, end: 20230319
  2. REVLIMID [Suspect]
     Active Substance: LENALIDOMIDE
     Dates: start: 20230425, end: 20230515
  3. REVLIMID [Suspect]
     Active Substance: LENALIDOMIDE
     Dates: start: 20230523, end: 20230612
  4. REVLIMID [Suspect]
     Active Substance: LENALIDOMIDE
     Dates: start: 20230620, end: 20230710
  5. REVLIMID [Suspect]
     Active Substance: LENALIDOMIDE
     Dates: start: 20230719, end: 20230725
  6. REVLIMID [Suspect]
     Active Substance: LENALIDOMIDE
     Dates: start: 20230830, end: 20230919
  7. RITUXIMAB [Suspect]
     Active Substance: RITUXIMAB
     Indication: Follicular lymphoma
     Dates: start: 20230310
  8. RITUXIMAB [Suspect]
     Active Substance: RITUXIMAB
     Dates: start: 20230317
  9. RITUXIMAB [Suspect]
     Active Substance: RITUXIMAB
     Dates: start: 20230425
  10. RITUXIMAB [Suspect]
     Active Substance: RITUXIMAB
     Dates: start: 20230523
  11. RITUXIMAB [Suspect]
     Active Substance: RITUXIMAB
     Dates: start: 20230620
  12. RITUXIMAB [Suspect]
     Active Substance: RITUXIMAB
     Dates: start: 20230719
  13. SULFAMETHOXAZOLE\TRIMETHOPRIM [Concomitant]
     Active Substance: SULFAMETHOXAZOLE\TRIMETHOPRIM
     Indication: Prophylaxis
     Route: 048
     Dates: start: 20230319
  14. ISCOTIN [Concomitant]
     Active Substance: ISONIAZID
     Indication: Prophylaxis
     Route: 048
     Dates: start: 20230319
  15. FLUCONAZOLE [Concomitant]
     Active Substance: FLUCONAZOLE
     Indication: Prophylaxis
     Route: 048
     Dates: start: 20230319
  16. VALACYCLOVIR HYDROCHLORIDE [Concomitant]
     Active Substance: VALACYCLOVIR HYDROCHLORIDE
     Indication: Prophylaxis
     Route: 048
     Dates: start: 20230316

REACTIONS (1)
  - COVID-19 [Recovered/Resolved]
